FAERS Safety Report 16840441 (Version 4)
Quarter: 2019Q4

REPORT INFORMATION
  Report Type: Spontaneous
  Country: BR (occurrence: BR)
  Receive Date: 20190923
  Receipt Date: 20191014
  Transmission Date: 20200122
  Serious: Yes (Death, Hospitalization, Other)
  Sender: FDA-Public Use
  Company Number: BR-009507513-1908BRA007381

PATIENT
  Sex: Male
  Weight: 64 kg

DRUGS (5)
  1. NESINAMET [Concomitant]
  2. ESCITALOPRAM [Concomitant]
     Active Substance: ESCITALOPRAM OXALATE
  3. PEMBROLIZUMAB. [Suspect]
     Active Substance: PEMBROLIZUMAB
     Dosage: C2; FREQUENCY: ONCE A DAY FOR 21 DAYS POSOLOGY: 133 MG VIAL, RECONSTITUTED EACH 1 MG IN 0 ML, SEPARA
     Route: 042
     Dates: start: 20190709
  4. PEMBROLIZUMAB. [Suspect]
     Active Substance: PEMBROLIZUMAB
     Indication: METASTATIC MALIGNANT MELANOMA
     Dosage: C1; FREQUENCY: ONCE A DAY FOR 21 DAYS POSOLOGY: 133 MG VIAL, RECONSTITUTED EACH 1 MG IN 0 ML, SEPARA
     Route: 042
     Dates: start: 20190618, end: 20190709
  5. BROMOPRIDE [Concomitant]
     Active Substance: BROMOPRIDE

REACTIONS (13)
  - Renal impairment [Fatal]
  - Depressed level of consciousness [Fatal]
  - Diarrhoea [Recovered/Resolved]
  - Nausea [Recovered/Resolved]
  - Hyponatraemia [Fatal]
  - Dizziness [Recovered/Resolved]
  - Dysphagia [Fatal]
  - Abdominal distension [Fatal]
  - Vomiting [Fatal]
  - Hyperlactacidaemia [Fatal]
  - Malignant neoplasm progression [Unknown]
  - Respiratory failure [Fatal]
  - Inappropriate schedule of product administration [Unknown]

NARRATIVE: CASE EVENT DATE: 2019
